FAERS Safety Report 8481746-5 (Version None)
Quarter: 2012Q3

REPORT INFORMATION
  Report Type: 
  Country: None (occurrence: None)
  Receive Date: 20120702
  Receipt Date: 20120619
  Transmission Date: 20120928
  Serious: Yes (Hospitalization)
  Sender: FDA-Public Use
  Company Number: KR-UCBSA-057859

PATIENT
  Age: 53 Year
  Sex: Female
  Weight: 46 kg

DRUGS (23)
  1. MELOXICAM [Concomitant]
     Indication: RHEUMATOID ARTHRITIS
     Route: 048
     Dates: start: 20090629
  2. PARAMACET [Concomitant]
     Indication: PAIN
     Dosage: DOSE PER INTAKE: 1 TABLET, TWICE PER DAY
     Route: 048
     Dates: start: 20100223
  3. PREDNISOLONE [Concomitant]
     Route: 048
     Dates: start: 20120606
  4. FOLIC ACID [Concomitant]
     Indication: PROPHYLAXIS
     Route: 048
     Dates: start: 20070314
  5. REBAMIPIDE [Concomitant]
     Indication: PROPHYLAXIS
     Route: 048
     Dates: start: 20070314
  6. ZOLPIDEM [Concomitant]
     Route: 048
     Dates: start: 20120531, end: 20120604
  7. ZOLPIDEM [Concomitant]
     Route: 048
     Dates: start: 20120531, end: 20120604
  8. PARAMACET [Concomitant]
     Dosage: DOSE PER INTAKE: 1 TABLET, TWICE PER DAY
     Route: 048
     Dates: start: 20120522, end: 20120523
  9. CIMZIA [Suspect]
     Route: 058
     Dates: start: 20100601
  10. PREDNISOLONE [Concomitant]
     Route: 048
     Dates: start: 20120526, end: 20120605
  11. METHOTREXATE [Concomitant]
     Indication: RHEUMATOID ARTHRITIS
     Route: 048
     Dates: start: 20070917
  12. ZOLPIDEM [Concomitant]
     Route: 048
     Dates: start: 20120521, end: 20120530
  13. PARAMACET [Concomitant]
     Indication: RHEUMATOID ARTHRITIS
     Dosage: DOSE PER INTAKE: 1 TABLET, TWICE PER DAY
     Route: 048
     Dates: start: 20100223
  14. PARAMACET [Concomitant]
     Dosage: DOSE PER INTAKE: 1 TABLET, TWICE PER DAY
     Route: 048
     Dates: start: 20120605
  15. PARAMACET [Concomitant]
     Dosage: DOSE PER INTAKE: 1 TABLET, TWICE PER DAY
     Route: 048
     Dates: start: 20120605
  16. PREDNISOLONE [Concomitant]
     Indication: RHEUMATOID ARTHRITIS
     Route: 048
     Dates: start: 20090921
  17. ZOLPIDEM [Concomitant]
     Indication: HERPES ZOSTER
     Route: 048
     Dates: start: 20091215
  18. ZOLPIDEM [Concomitant]
     Indication: INSOMNIA
     Route: 048
     Dates: start: 20091215
  19. ZOLPIDEM [Concomitant]
     Route: 048
     Dates: start: 20120521, end: 20120530
  20. PARAMACET [Concomitant]
     Dosage: DOSE PER INTAKE: 1 TABLET, TWICE PER DAY
     Route: 048
     Dates: start: 20120605
  21. PARAMACET [Concomitant]
     Indication: HERPES ZOSTER
     Dosage: DOSE PER INTAKE: 1 TABLET, TWICE PER DAY
     Route: 048
     Dates: start: 20100223
  22. PARAMACET [Concomitant]
     Dosage: DOSE PER INTAKE: 1 TABLET, TWICE PER DAY
     Route: 048
     Dates: start: 20120522, end: 20120523
  23. PARAMACET [Concomitant]
     Dosage: DOSE PER INTAKE: 1 TABLET, TWICE PER DAY
     Route: 048
     Dates: start: 20120522, end: 20120523

REACTIONS (1)
  - HERPES ZOSTER [None]
